FAERS Safety Report 6124119-2 (Version None)
Quarter: 2009Q1

REPORT INFORMATION
  Report Type: 
  Country: None (occurrence: None)
  Receive Date: 20090318
  Receipt Date: 20090318
  Transmission Date: 20090719
  Serious: No
  Sender: FDA-Public Use
  Company Number: None

PATIENT
  Age: 34 Year
  Sex: Female
  Weight: 56.6996 kg

DRUGS (2)
  1. BUPROPION HCL [Suspect]
     Dosage: 300 DAILY PO
     Dates: start: 20080923, end: 20090122
  2. WELLBUTRIN XL [Suspect]

REACTIONS (4)
  - DEPRESSED MOOD [None]
  - DRUG EFFECT DECREASED [None]
  - EMOTIONAL DISORDER [None]
  - PRODUCT QUALITY ISSUE [None]
